FAERS Safety Report 7101623-1 (Version None)
Quarter: 2010Q4

REPORT INFORMATION
  Report Type: 
  Country: None (occurrence: None)
  Receive Date: 20101115
  Receipt Date: 20101101
  Transmission Date: 20110411
  Serious: Yes (Other)
  Sender: FDA-Public Use
  Company Number: PHHY2010VE74412

PATIENT
  Sex: Male

DRUGS (4)
  1. ZOMETA [Suspect]
     Indication: METASTASES TO BONE
     Dosage: 4 MG, UNK
     Dates: end: 20100501
  2. ZOMETA [Suspect]
     Dosage: 4 MG, UNK
     Dates: start: 20101003
  3. DEXAMETHASONE [Concomitant]
     Dosage: 20 MG, QW3
     Dates: start: 20090701, end: 20100501
  4. REMICADE [Concomitant]
     Dosage: UNK
     Route: 030
     Dates: start: 20090701, end: 20100501

REACTIONS (1)
  - BONE MARROW TRANSPLANT [None]
